FAERS Safety Report 5693761-5 (Version None)
Quarter: 2008Q2

REPORT INFORMATION
  Report Type: 
  Country: None (occurrence: None)
  Receive Date: 20080403
  Receipt Date: 20080326
  Transmission Date: 20081010
  Serious: Yes (Other)
  Sender: FDA-Public Use
  Company Number: US-JNJFOC-20080400032

PATIENT
  Sex: Female
  Weight: 82.56 kg

DRUGS (8)
  1. FENTANYL TRANSDERMAL SYSTEM [Suspect]
     Route: 062
  2. FENTANYL TRANSDERMAL SYSTEM [Suspect]
     Route: 062
  3. FENTANYL TRANSDERMAL SYSTEM [Suspect]
     Indication: INTERVERTEBRAL DISC DEGENERATION
     Route: 062
  4. KLONOPIN [Concomitant]
     Indication: ANXIETY
     Route: 048
  5. KLONOPIN [Concomitant]
     Indication: BIPOLAR DISORDER
     Route: 048
  6. ZANAFLEX [Concomitant]
     Indication: MUSCLE SPASMS
     Route: 048
  7. HORMONE REPLACEMENT [Concomitant]
     Indication: HORMONE REPLACEMENT THERAPY
     Route: 048
  8. PREVACID [Concomitant]
     Indication: GASTROOESOPHAGEAL REFLUX DISEASE
     Route: 048

REACTIONS (5)
  - APPLICATION SITE IRRITATION [None]
  - HYPOAESTHESIA [None]
  - NEURALGIA [None]
  - WITHDRAWAL SYNDROME [None]
  - WRONG TECHNIQUE IN DRUG USAGE PROCESS [None]
